FAERS Safety Report 10219642 (Version 2)
Quarter: 2014Q2

REPORT INFORMATION
  Report Type: Report from Study
  Country: CA (occurrence: CA)
  Receive Date: 20140605
  Receipt Date: 20140626
  Transmission Date: 20141212
  Serious: Yes (Other)
  Sender: FDA-Public Use
  Company Number: PHHO2014CA007855

PATIENT
  Age: 38 Year
  Sex: Female
  Weight: 74.2 kg

DRUGS (3)
  1. FTY 720 [Suspect]
     Indication: MULTIPLE SCLEROSIS
     Dosage: 0.5 MG, QD
     Route: 048
     Dates: start: 20110607
  2. ZOPICLONE [Concomitant]
     Indication: INSOMNIA
     Dosage: 3.75 MG, HS
     Route: 048
     Dates: start: 20110615
  3. SUMATRIPTAN [Concomitant]

REACTIONS (1)
  - Retinal haemorrhage [Not Recovered/Not Resolved]
